FAERS Safety Report 8083684 (Version 3)
Quarter: 2012Q4

REPORT INFORMATION
  Report Type: 
  Country: CA (occurrence: CA)
  Receive Date: 20110810
  Receipt Date: 20121029
  Transmission Date: 20130627
  Serious: Yes (Death, Hospitalization)
  Sender: FDA-Public Use
  Company Number: PHHY2011CA69883

PATIENT
  Sex: Female

DRUGS (1)
  1. SANDOSTATIN LAR [Suspect]
     Indication: NEUROENDOCRINE TUMOUR
     Dosage: 30 mg, Every 4 weeks
     Route: 030
     Dates: start: 20070517

REACTIONS (5)
  - Death [Fatal]
  - Nausea [Unknown]
  - Hypophagia [Unknown]
  - Fatigue [Recovering/Resolving]
  - Abdominal pain [Unknown]
